FAERS Safety Report 19410822 (Version 1)
Quarter: 2021Q2

REPORT INFORMATION
  Report Type: Spontaneous
  Country: US (occurrence: US)
  Receive Date: 20210614
  Receipt Date: 20210614
  Transmission Date: 20210717
  Serious: Yes (Hospitalization, Other)
  Sender: FDA-Public Use
  Company Number: US-MACLEODS PHARMACEUTICALS US LTD-MAC2021031502

PATIENT

DRUGS (2)
  1. ACYCLOVIR. [Suspect]
     Active Substance: ACYCLOVIR
     Indication: HERPES SIMPLEX
     Dosage: 400 MILLIGRAM, BID
     Route: 048
  2. ACYCLOVIR. [Suspect]
     Active Substance: ACYCLOVIR
     Indication: PAIN
     Dosage: 8 DOSAGE FORM, SINGLE, TAKEN 8 (400 MG) TABLETS AT ONCE
     Route: 048

REACTIONS (5)
  - Penile erythema [Unknown]
  - Intentional overdose [Unknown]
  - Neurotoxicity [Recovered/Resolved]
  - Malignant hypertension [Unknown]
  - Penile infection [Unknown]
